FAERS Safety Report 5401530-6 (Version None)
Quarter: 2007Q3

REPORT INFORMATION
  Report Type: 
  Country: None (occurrence: None)
  Receive Date: 20070731
  Receipt Date: 20070719
  Transmission Date: 20080115
  Serious: Yes (Other)
  Sender: FDA-Public Use
  Company Number: BE-ROCHE-507989

PATIENT
  Age: 49 Year
  Sex: Female

DRUGS (4)
  1. RIBAVIRIN [Suspect]
     Route: 065
  2. PEG-INTERFERON ALFA 2B [Suspect]
     Dosage: ADMINISTERED WEEKLY.
     Route: 065
  3. PEG-INTERFERON ALFA 2B [Suspect]
     Dosage: ADMINISTERED WEEKLY.
     Route: 065
  4. PEG-INTERFERON ALFA 2B [Suspect]
     Dosage: RE-STARTED AT LOWER DOSES AND INCREASED TO 100 MCG FOR FIVE MONTHS.
     Route: 065

REACTIONS (11)
  - ALANINE AMINOTRANSFERASE INCREASED [None]
  - ANOREXIA [None]
  - ARTHRALGIA [None]
  - ASPARTATE AMINOTRANSFERASE INCREASED [None]
  - GAMMA-GLUTAMYLTRANSFERASE INCREASED [None]
  - INFLUENZA LIKE ILLNESS [None]
  - MYALGIA [None]
  - PYREXIA [None]
  - SOMATIC DELUSION [None]
  - THROMBOCYTOPENIA [None]
  - WEIGHT DECREASED [None]
